FAERS Safety Report 8576983-5 (Version None)
Quarter: 2012Q3

REPORT INFORMATION
  Report Type: 
  Country: None (occurrence: None)
  Receive Date: 20120807
  Receipt Date: 20120727
  Transmission Date: 20120928
  Serious: Yes (Hospitalization)
  Sender: FDA-Public Use
  Company Number: US-BAYER-2012-076580

PATIENT
  Age: 43 Year
  Sex: Female
  Weight: 69.841 kg

DRUGS (2)
  1. CITALOPRAM HYDROBROMIDE [Concomitant]
     Dosage: 20 MG, UNK
     Dates: start: 20070512, end: 20071015
  2. YASMIN [Suspect]

REACTIONS (1)
  - PULMONARY EMBOLISM [None]
